FAERS Safety Report 10057999 (Version 2)
Quarter: 2014Q2

REPORT INFORMATION
  Report Type: Spontaneous
  Country: US (occurrence: US)
  Receive Date: 20140404
  Receipt Date: 20140429
  Transmission Date: 20141212
  Serious: Yes (Other)
  Sender: FDA-Public Use
  Company Number: US-AMGEN-USASP2014022626

PATIENT
  Age: 65 Year
  Sex: Female
  Weight: 59.86 kg

DRUGS (6)
  1. PROLIA [Suspect]
     Indication: OSTEOPOROSIS
     Dosage: 60 MG/ML, UNK
     Route: 058
     Dates: start: 20140204
  2. LISINOPRIL HCTZ [Concomitant]
     Dosage: UNK
     Route: 048
     Dates: start: 2011
  3. AMBIEN [Concomitant]
     Dosage: 10 MG, UNK
     Route: 048
     Dates: start: 2011
  4. CALCIUM [Concomitant]
  5. PROBIOTICS                         /07325001/ [Concomitant]
  6. VITAMIN D                          /00107901/ [Concomitant]

REACTIONS (4)
  - Angioedema [Recovered/Resolved]
  - Drug eruption [Recovered/Resolved]
  - Drug hypersensitivity [Recovered/Resolved]
  - Urticaria [Recovered/Resolved]
